FAERS Safety Report 14765486 (Version 1)
Quarter: 2018Q2

REPORT INFORMATION
  Report Type: Spontaneous
  Country: US (occurrence: US)
  Receive Date: 20180410
  Receipt Date: 20180410
  Transmission Date: 20180711
  Serious: Yes (Hospitalization)
  Sender: FDA-Public Use
  Company Number: None

PATIENT
  Age: 82 Year
  Sex: Female

DRUGS (14)
  1. CALC ACETATE [Concomitant]
  2. IMATINIB 100 MG [Suspect]
     Active Substance: IMATINIB
     Indication: CHRONIC MYELOID LEUKAEMIA
     Route: 048
     Dates: start: 20190209
  3. KCL [Concomitant]
     Active Substance: POTASSIUM CHLORIDE
  4. VITAMIN B12 [Concomitant]
     Active Substance: CYANOCOBALAMIN
  5. VITAMIN D [Concomitant]
     Active Substance: CHOLECALCIFEROL
  6. AMIODARONE [Concomitant]
     Active Substance: AMIODARONE
  7. MUCUS RELIEF [Concomitant]
     Active Substance: GUAIFENESIN
  8. HYDROCOD/APAP [Concomitant]
  9. FE [Concomitant]
     Active Substance: IRON
  10. SYNTHROID [Concomitant]
     Active Substance: LEVOTHYROXINE SODIUM
  11. MIDODRINE [Concomitant]
     Active Substance: MIDODRINE
  12. CEFDINIR. [Concomitant]
     Active Substance: CEFDINIR
  13. LEVOTHYROXINE. [Concomitant]
     Active Substance: LEVOTHYROXINE
  14. PANTOPRAZOLE [Concomitant]
     Active Substance: PANTOPRAZOLE

REACTIONS (2)
  - Pneumonia [None]
  - Drug dose omission [None]

NARRATIVE: CASE EVENT DATE: 20180312
